FAERS Safety Report 5663843-2 (Version None)
Quarter: 2008Q1

REPORT INFORMATION
  Report Type: 
  Country: None (occurrence: None)
  Receive Date: 20080311
  Receipt Date: 20080228
  Transmission Date: 20080703
  Serious: Yes (Hospitalization)
  Sender: FDA-Public Use
  Company Number: 2008AP000541

PATIENT
  Age: 22 Year
  Sex: Female

DRUGS (4)
  1. IPRATROPIUM BROMIDE [Suspect]
     Dosage: 1 ML; NEB_SOL; INH; Q6H
     Route: 055
  2. SALBUTAMOL (SALBUTAMOL) [Concomitant]
  3. MULTIVITAMINS (MULTVITAMINS) [Concomitant]
  4. PANCREASE (PANCRELIPASE) [Concomitant]

REACTIONS (7)
  - ACCOMMODATION DISORDER [None]
  - ASTHENOPIA [None]
  - FEELING ABNORMAL [None]
  - IIIRD NERVE PARALYSIS [None]
  - MEDICAL DEVICE COMPLICATION [None]
  - MYDRIASIS [None]
  - PUPILLARY REFLEX IMPAIRED [None]
